FAERS Safety Report 7685766-X (Version None)
Quarter: 2011Q3

REPORT INFORMATION
  Report Type: 
  Country: None (occurrence: None)
  Receive Date: 20110815
  Receipt Date: 20110815
  Transmission Date: 20111222
  Serious: Yes (Hospitalization)
  Sender: FDA-Public Use
  Company Number: None

PATIENT
  Age: 84 Year
  Sex: Male
  Weight: 79.4 kg

DRUGS (12)
  1. FERROUS SULFATE TAB [Concomitant]
     Route: 048
  2. ASPIRIN [Concomitant]
     Route: 048
  3. LIDODERM [Concomitant]
     Route: 062
  4. DIOVAN [Concomitant]
     Route: 048
  5. PRADAXA [Suspect]
     Indication: ATRIAL FIBRILLATION
     Dosage: 150 MG
     Route: 048
  6. TYLENOL-500 [Concomitant]
     Route: 048
  7. VIACTIV PLUS D [Concomitant]
     Route: 048
  8. PRADAXA [Concomitant]
     Route: 048
  9. LOVAZA [Concomitant]
     Route: 048
  10. LATANOPROST [Concomitant]
     Route: 047
  11. CELEBREX [Concomitant]
     Route: 048
  12. XYZAL [Concomitant]
     Route: 048

REACTIONS (5)
  - DIZZINESS POSTURAL [None]
  - OCCULT BLOOD POSITIVE [None]
  - GASTRITIS [None]
  - OESOPHAGITIS [None]
  - ANAEMIA [None]
